FAERS Safety Report 10398931 (Version 1)
Quarter: 2014Q3

REPORT INFORMATION
  Report Type: Spontaneous
  Country: ES (occurrence: None)
  Receive Date: 20140819
  Receipt Date: 20140819
  Transmission Date: 20150326
  Serious: Yes (Death, Hospitalization)
  Sender: FDA-Public Use
  Company Number: AUR-APL-2014-08817

PATIENT
  Age: 88 Year
  Sex: Male

DRUGS (8)
  1. CARVEDILOL. [Suspect]
     Active Substance: CARVEDILOL
     Indication: CARDIAC FAILURE CONGESTIVE
     Route: 048
     Dates: start: 20130702, end: 20130913
  2. ENALAPRIL [Suspect]
     Active Substance: ENALAPRIL
     Indication: CARDIAC FAILURE CONGESTIVE
     Route: 048
     Dates: start: 20130702, end: 20130913
  3. AVODART [Concomitant]
     Active Substance: DUTASTERIDE
  4. SEGURIL (FUROSEMIDE) [Concomitant]
  5. SINTROM (ACENOCOUMAROL) [Concomitant]
     Active Substance: ACENOCOUMAROL
  6. ATROVENT (IPRATROPIUM BROMIDE) [Concomitant]
  7. UROLOSIN (TAMSULOSIN HYDROCHLORIDE) [Concomitant]
  8. ALDACTONE [Suspect]
     Active Substance: SPIRONOLACTONE
     Indication: CARDIAC FAILURE CONGESTIVE
     Route: 048
     Dates: start: 20130702, end: 20130913

REACTIONS (8)
  - Muscle twitching [None]
  - Eye disorder [None]
  - Continuous haemodiafiltration [None]
  - Hypoxic-ischaemic encephalopathy [None]
  - Hyperkalaemia [None]
  - Cardio-respiratory arrest [None]
  - Myoclonus [None]
  - Drug interaction [None]

NARRATIVE: CASE EVENT DATE: 20130913
